FAERS Safety Report 8459065 (Version 4)
Quarter: 2013Q1

REPORT INFORMATION
  Report Type: Spontaneous
  Country: JP (occurrence: None)
  Receive Date: 20120307
  Receipt Date: 20121109
  Transmission Date: 20140127
  Serious: Yes (Other)
  Sender: FDA-Public Use
  Company Number: 2012S1000226

PATIENT
  Sex: 0

DRUGS (1)
  1. CUBICIN [Suspect]
     Indication: HYPERLIPIDAEMIA

REACTIONS (2)
  - Rhabdomyolysis [None]
  - Neutropenia [None]
